FAERS Safety Report 9279178 (Version 3)
Quarter: 2012Q4

REPORT INFORMATION
  Report Type: Spontaneous
  Country: None (occurrence: None)
  Receive Date: 20120918
  Receipt Date: 20121011
  Transmission Date: 20130627
  Serious: Yes (Life-Threatening)
  Sender: FDA-Public Use
  Company Number: AUR-APL-2012-03552

PATIENT
  Age: 82 Year
  Sex: Female
  Weight: 57.15 kg

DRUGS (11)
  1. RAMIPRIL (RAMIPRIL) [Suspect]
     Indication: DRUG USE FOR UNKNOWN INDICATION
     Dates: start: 20120521
  2. LITHIUM (LITHIUM) UNKNOWN [Suspect]
     Indication: DEPRESSIVE DISORDER
  3. AMLODIPINE (AMLODIPINE) [Concomitant]
  4. BENDROFLUMETHIAZIDE (BENDROFLUMETHIAZIDE) [Concomitant]
  5. DIAZEPAM (DIAZEPAM) [Concomitant]
  6. LEVOTHYROXINE (LEVOTHYROXINE) [Concomitant]
  7. LOFEPRAMINE (LOFEPRAMINE) [Concomitant]
  8. OLANZAPINE (OLANZAPINE) [Concomitant]
  9. PRIADEL (LITHIUM CARBONATE) [Concomitant]
  10. SYMBICORT (BUDESONIDE W/FORMOTEROL FUMARATE) [Concomitant]
  11. ZOPICLONE (ZOPICLONE) [Concomitant]

REACTIONS (3)
  - Antipsychotic drug level increased [None]
  - Glomerular filtration rate decreased [None]
  - Drug interaction [None]
